FAERS Safety Report 11109183 (Version 1)
Quarter: 2015Q2

REPORT INFORMATION
  Report Type: Spontaneous
  Country: US (occurrence: None)
  Receive Date: 20150511
  Receipt Date: 20150511
  Transmission Date: 20150821
  Serious: Yes (Hospitalization)
  Sender: FDA-Public Use
  Company Number: US-001906

PATIENT
  Age: 23 Year
  Sex: Female

DRUGS (9)
  1. ELECTROLYTES [Concomitant]
     Active Substance: ELECTROLYTES NOS
  2. TEDUGLUTIDE [Suspect]
     Active Substance: TEDUGLUTIDE
     Indication: SHORT-BOWEL SYNDROME
     Route: 058
  3. ORS [Concomitant]
  4. DIETARY SUPPLEMENT [Concomitant]
     Active Substance: DIETARY SUPPLEMENT
  5. FONDAPARINUX [Concomitant]
     Active Substance: FONDAPARINUX
  6. PHOSPHORUS [Concomitant]
     Active Substance: PHOSPHORUS
  7. MAGNESIUM [Concomitant]
     Active Substance: MAGNESIUM
  8. MINERAL SUPPLEMENTS [Concomitant]
     Active Substance: UNSPECIFIED INGREDIENT
  9. SOLUTIONW FOR PARENTERAL NUTRITION [Concomitant]

REACTIONS (2)
  - Pneumatosis intestinalis [None]
  - Lipase increased [None]

NARRATIVE: CASE EVENT DATE: 2014
